FAERS Safety Report 19500986 (Version 1)
Quarter: 2021Q3

REPORT INFORMATION
  Report Type: Report from Study
  Country: None (occurrence: US)
  Receive Date: 20210707
  Receipt Date: 20210707
  Transmission Date: 20211014
  Serious: Yes (Other)
  Sender: FDA-Public Use
  Company Number: US-ABBVIE-21K-163-3977396-00

PATIENT
  Age: 44 Year
  Sex: Female

DRUGS (3)
  1. HUMIRA [Suspect]
     Active Substance: ADALIMUMAB
     Route: 058
     Dates: start: 20210626
  2. HUMIRA [Suspect]
     Active Substance: ADALIMUMAB
     Indication: RHEUMATOID ARTHRITIS
     Route: 058
     Dates: start: 202009, end: 202012
  3. HUMIRA [Suspect]
     Active Substance: ADALIMUMAB
     Route: 058
     Dates: start: 202102, end: 20210612

REACTIONS (12)
  - Ear swelling [Recovered/Resolved]
  - Loss of personal independence in daily activities [Unknown]
  - Infection [Unknown]
  - Gastric ulcer [Unknown]
  - Otorrhoea [Unknown]
  - Pain [Unknown]
  - Joint injury [Unknown]
  - General physical health deterioration [Unknown]
  - Inflammation [Recovered/Resolved]
  - Scoliosis [Unknown]
  - Ear infection [Unknown]
  - Gastric ulcer [Unknown]

NARRATIVE: CASE EVENT DATE: 202105
